FAERS Safety Report 25877521 (Version 3)
Quarter: 2025Q4

REPORT INFORMATION
  Report Type: Spontaneous
  Country: CA (occurrence: CA)
  Receive Date: 20251003
  Receipt Date: 20251022
  Transmission Date: 20260118
  Serious: Yes (Hospitalization)
  Sender: PFIZER
  Company Number: CA-PFIZER INC-202500111249

PATIENT
  Age: 31 Year
  Sex: Male
  Weight: 81 kg

DRUGS (8)
  1. IXIFI [Suspect]
     Active Substance: INFLIXIMAB-QBTX
     Indication: Crohn^s disease
     Dosage: 1 DF, EVERY 8 WEEKS (7.5 MG/KG)
     Route: 042
     Dates: start: 20250801
  2. IXIFI [Suspect]
     Active Substance: INFLIXIMAB-QBTX
     Dosage: 607.5 MG, EVERY 8 WEEKS, (1 DF, EVERY 8 WEEKS, 7.5MG/KG)
     Route: 042
     Dates: start: 20250926
  3. IXIFI [Suspect]
     Active Substance: INFLIXIMAB-QBTX
     Dosage: 210 MG, AFTER 2 WEEKS AND 6 DAYS, (2500 MCG/KG, STAT DOSE)
     Route: 042
     Dates: start: 20251016
  4. CALCIUM [Concomitant]
     Active Substance: CALCIUM
     Dosage: 1 DF
  5. KEPPRA [Concomitant]
     Active Substance: LEVETIRACETAM
     Dosage: 1 DF
  6. LORAZEPAM [Concomitant]
     Active Substance: LORAZEPAM
     Dosage: 1 DF
  7. PREDNISONE [Concomitant]
     Active Substance: PREDNISONE
     Dosage: 1 DF
  8. PREDNISONE [Concomitant]
     Active Substance: PREDNISONE
     Dosage: UNK, DECREASING DOSES

REACTIONS (3)
  - Induration [Recovered/Resolved]
  - Condition aggravated [Recovered/Resolved]
  - Off label use [Unknown]

NARRATIVE: CASE EVENT DATE: 20250801
